FAERS Safety Report 4361388-3 (Version None)
Quarter: 2004Q2

REPORT INFORMATION
  Report Type: 
  Country: None (occurrence: None)
  Receive Date: 20040521
  Receipt Date: 20040514
  Transmission Date: 20050107
  Serious: Yes (Other)
  Sender: FDA-Public Use
  Company Number: PHEH2004US05335

PATIENT
  Age: 33 Year
  Sex: Male

DRUGS (1)
  1. TEGRETOL [Suspect]
     Indication: GRAND MAL CONVULSION
     Dosage: 300 MG, BID
     Route: 048
     Dates: start: 19850101

REACTIONS (1)
  - AMNESIA [None]
